FAERS Safety Report 8495328-2 (Version None)
Quarter: 2012Q2

REPORT INFORMATION
  Report Type: 
  Country: None (occurrence: None)
  Receive Date: 20120628
  Receipt Date: 20120612
  Transmission Date: 20120825
  Serious: Yes (Other)
  Sender: FDA-Public Use
  Company Number: 2011MA002616

PATIENT
  Sex: Male

DRUGS (61)
  1. CYPROHEPTADINE HCL [Concomitant]
  2. STRATTERA [Concomitant]
  3. TRAZODONE HYDROCHLORIDE [Concomitant]
  4. ACETAMINOPHEN AND CODEINE PHOSPHATE [Concomitant]
  5. RANITIDINE [Concomitant]
  6. LIDODERM [Concomitant]
  7. LUNESTA [Concomitant]
  8. PANOKASE [Concomitant]
  9. METOCLOPRAMIDE [Suspect]
     Dosage: 10 MG; Q6HR; PO
     Route: 048
     Dates: start: 20021126, end: 20051201
  10. ALPRAZOLAM [Concomitant]
  11. PRAVACHOL [Concomitant]
  12. PENTASA [Concomitant]
  13. PROTONIX [Concomitant]
  14. TRAMADOL HCL [Concomitant]
  15. CYMBALTA [Concomitant]
  16. HYDROMORPHONE HCL [Concomitant]
  17. METRONIDAZOLE [Concomitant]
  18. LORAZEPAM [Concomitant]
  19. AVALIDE [Concomitant]
  20. ZELNORM [Concomitant]
  21. PENICILLIN [Concomitant]
  22. PROMETHAZINE W/ CODEINE [Concomitant]
  23. ULTRACET [Concomitant]
  24. ACIPHEX [Concomitant]
  25. AMOXICILLIN [Concomitant]
  26. ACIPHEX [Concomitant]
  27. BENICAR [Concomitant]
  28. BEXTRA [Concomitant]
  29. NEXIUM [Concomitant]
  30. CLONIDINE [Concomitant]
  31. LEVAQUIN [Concomitant]
  32. GLYCOLAX [Concomitant]
  33. IBUPROFEN [Concomitant]
  34. ANTARA (MICRONIZED) [Concomitant]
  35. CATAPRES-TTS-1 [Concomitant]
  36. WELCHOL [Concomitant]
  37. HYDROCHLOROTHIAZIDE [Concomitant]
  38. CRESTOR [Concomitant]
  39. CHLORDIAZEPOXIDE [Concomitant]
  40. ZITHROMAX [Concomitant]
  41. ISOSORBIDE [Concomitant]
  42. ZYPREXA [Concomitant]
  43. LEXAPRO [Concomitant]
  44. PREDNISONE [Concomitant]
  45. CIALIS [Concomitant]
  46. SKELAXIN [Concomitant]
  47. SULINDAC [Concomitant]
  48. CYCLOBENZAPRINE [Concomitant]
  49. ZETIA [Concomitant]
  50. GABAPENTIN [Concomitant]
  51. ALTACE [Concomitant]
  52. AUGMENTIN '125' [Concomitant]
  53. SINGULAIR [Concomitant]
  54. CELEXA [Concomitant]
  55. PREVACID [Concomitant]
  56. HYDROCODONE BITARTRATE AND ACETAMINOPHEN [Concomitant]
  57. VICODIN [Concomitant]
  58. TRICOR [Concomitant]
  59. LOTREL [Concomitant]
  60. AMBIEN [Concomitant]
  61. COZAAR [Concomitant]

REACTIONS (8)
  - DYSTONIA [None]
  - ECONOMIC PROBLEM [None]
  - TARDIVE DYSKINESIA [None]
  - EMOTIONAL DISORDER [None]
  - AKATHISIA [None]
  - TREMOR [None]
  - EXTRAPYRAMIDAL DISORDER [None]
  - MOVEMENT DISORDER [None]
